FAERS Safety Report 4998117-6 (Version None)
Quarter: 2006Q2

REPORT INFORMATION
  Report Type: 
  Country: None (occurrence: None)
  Receive Date: 20060510
  Receipt Date: 20050902
  Transmission Date: 20061013
  Serious: Yes (Hospitalization)
  Sender: FDA-Public Use
  Company Number: US-MERCK-0509USA00757

PATIENT
  Age: 43 Year
  Sex: Male
  Weight: 109 kg

DRUGS (1)
  1. VIOXX [Suspect]
     Indication: BACK PAIN
     Route: 048
     Dates: start: 20000101, end: 20040901

REACTIONS (13)
  - ACUTE MYOCARDIAL INFARCTION [None]
  - ANGINA PECTORIS [None]
  - ANXIETY [None]
  - CARDIOVASCULAR DISORDER [None]
  - CORONARY ARTERY DISEASE [None]
  - CYST [None]
  - DEPRESSION [None]
  - DYSPNOEA [None]
  - ERECTILE DYSFUNCTION [None]
  - HYPERTRIGLYCERIDAEMIA [None]
  - INSOMNIA [None]
  - MYOCARDIAL INFARCTION [None]
  - VENTRICULAR EXTRASYSTOLES [None]
